FAERS Safety Report 8618688-8 (Version None)
Quarter: 2012Q3

REPORT INFORMATION
  Report Type: 
  Country: None (occurrence: None)
  Receive Date: 20120824
  Receipt Date: 20120813
  Transmission Date: 20120928
  Serious: Yes (Hospitalization)
  Sender: FDA-Public Use
  Company Number: US-JNJFOC-20120704321

PATIENT
  Sex: Male
  Weight: 90.72 kg

DRUGS (16)
  1. FENTANYL [Suspect]
     Route: 062
     Dates: start: 20100101
  2. OXYCODONE HCL [Suspect]
     Indication: BREAKTHROUGH PAIN
     Route: 048
     Dates: start: 20090101, end: 20100101
  3. FLEXERIL [Concomitant]
     Route: 048
     Dates: start: 20120501
  4. LYRICA [Concomitant]
     Indication: NEURALGIA
     Route: 048
  5. FENTANYL CITRATE [Suspect]
     Indication: PRODUCT USED FOR UNKNOWN INDICATION
     Route: 062
     Dates: start: 20080901
  6. EFFEXOR [Concomitant]
     Indication: ANXIETY
     Route: 048
     Dates: start: 20120501
  7. FENTANYL-100 [Suspect]
     Indication: PRODUCT USED FOR UNKNOWN INDICATION
     Route: 062
     Dates: start: 20080901
  8. DURAGESIC-100 [Suspect]
     Indication: PAIN
     Route: 062
     Dates: start: 20090101
  9. CLONAZEPAM [Concomitant]
     Indication: ANXIETY
     Dosage: IN THE MORNING AS NEEDED
     Route: 048
     Dates: start: 20070101
  10. DURAGESIC-100 [Suspect]
     Indication: PRODUCT USED FOR UNKNOWN INDICATION
     Route: 062
     Dates: start: 20070101
  11. ALEVE [Concomitant]
     Indication: ARTHRALGIA
     Dosage: TWO IN MORNING TWO IN NIGHT
     Route: 048
     Dates: start: 20110101
  12. FENTANYL [Suspect]
     Indication: SURGERY
     Route: 062
     Dates: start: 20080901, end: 20081001
  13. FENTANYL [Suspect]
     Route: 062
     Dates: start: 20081001
  14. DURAGESIC-100 [Suspect]
     Route: 062
     Dates: start: 20110701, end: 20120601
  15. DURAGESIC-100 [Suspect]
     Route: 062
     Dates: start: 20120601
  16. EFFEXOR [Concomitant]
     Indication: DEPRESSION
     Route: 048
     Dates: start: 20120501

REACTIONS (22)
  - ANXIETY [None]
  - PRODUCT QUALITY ISSUE [None]
  - ABDOMINAL DISCOMFORT [None]
  - INCORRECT DRUG ADMINISTRATION DURATION [None]
  - BACK PAIN [None]
  - NAUSEA [None]
  - DRUG DOSE OMISSION [None]
  - INAPPROPRIATE SCHEDULE OF DRUG ADMINISTRATION [None]
  - DECREASED APPETITE [None]
  - NEUROPATHY PERIPHERAL [None]
  - PERONEAL NERVE PALSY [None]
  - SCIATICA [None]
  - FALL [None]
  - MUSCLE SPASMS [None]
  - PAIN [None]
  - ABNORMAL LOSS OF WEIGHT [None]
  - HYPOAESTHESIA [None]
  - DRUG EFFECT DECREASED [None]
  - WRONG TECHNIQUE IN DRUG USAGE PROCESS [None]
  - MALAISE [None]
  - FORMICATION [None]
  - VOMITING [None]
